FAERS Safety Report 7554005-2 (Version None)
Quarter: 2011Q2

REPORT INFORMATION
  Report Type: 
  Country: None (occurrence: None)
  Receive Date: 20110617
  Receipt Date: 20110608
  Transmission Date: 20111010
  Serious: Yes (Other)
  Sender: FDA-Public Use
  Company Number: US-AMGEN-USASP2011029693

PATIENT

DRUGS (1)
  1. ENBREL [Suspect]
     Dosage: 50 UNK, QWK
     Route: 064
     Dates: start: 20060801, end: 20080601

REACTIONS (1)
  - FEVER NEONATAL [None]
